FAERS Safety Report 8133118-0 (Version None)
Quarter: 2012Q1

REPORT INFORMATION
  Report Type: 
  Country: None (occurrence: None)
  Receive Date: 20120213
  Receipt Date: 20120207
  Transmission Date: 20120608
  Serious: Yes (Hospitalization)
  Sender: FDA-Public Use
  Company Number: PHHY2011JP105932

PATIENT
  Age: 59 Year
  Sex: Female

DRUGS (3)
  1. NEORAL [Suspect]
     Indication: PSORIASIS
     Dosage: 150 MG
     Route: 048
  2. NEORAL [Suspect]
     Dosage: 75 MG
     Route: 048
  3. NEORAL [Suspect]
     Dosage: 100 MG
     Route: 048

REACTIONS (2)
  - CHOLECYSTITIS [None]
  - HEPATIC FUNCTION ABNORMAL [None]
